FAERS Safety Report 17465795 (Version 2)
Quarter: 2020Q2

REPORT INFORMATION
  Report Type: Spontaneous
  Country: US (occurrence: US)
  Receive Date: 20200227
  Receipt Date: 20200420
  Transmission Date: 20200713
  Serious: No
  Sender: FDA-Public Use
  Company Number: US-AMGEN-USASP2020029434

PATIENT
  Age: 59 Year
  Sex: Male

DRUGS (2)
  1. REPATHA [Suspect]
     Active Substance: EVOLOCUMAB
     Indication: CORONARY ARTERY DISEASE
     Dosage: UNK
     Route: 065
  2. REPATHA [Suspect]
     Active Substance: EVOLOCUMAB
     Indication: MIGRAINE PROPHYLAXIS
     Dosage: 140 MILLIGRAM PER MILLILITRE, Q2WK
     Route: 065
     Dates: start: 20200218

REACTIONS (8)
  - Sinus disorder [Unknown]
  - Chills [Recovered/Resolved]
  - Wrong technique in product usage process [Unknown]
  - Peripheral coldness [Unknown]
  - Somnolence [Unknown]
  - Sleep disorder due to a general medical condition [Unknown]
  - Sinus pain [Unknown]
  - Sinus headache [Unknown]

NARRATIVE: CASE EVENT DATE: 202002
